FAERS Safety Report 4664374-9 (Version None)
Quarter: 2005Q2

REPORT INFORMATION
  Report Type: 
  Country: None (occurrence: None)
  Receive Date: 20050518
  Receipt Date: 20050511
  Transmission Date: 20051028
  Serious: Yes (Life-Threatening, Hospitalization, Disabling)
  Sender: FDA-Public Use
  Company Number: US-MERCK-0505USA01384

PATIENT
  Age: 84 Year
  Sex: Male

DRUGS (4)
  1. FOSAMAX [Suspect]
     Indication: OSTEOPOROSIS
     Route: 048
     Dates: start: 20040101
  2. FLOMAX [Concomitant]
     Route: 065
  3. LANTUS [Concomitant]
     Route: 065
  4. HUMALOG [Concomitant]
     Route: 065

REACTIONS (5)
  - BLOOD GLUCOSE ABNORMAL [None]
  - DUODENAL ULCER [None]
  - HAEMATEMESIS [None]
  - INTESTINAL OBSTRUCTION [None]
  - WEIGHT DECREASED [None]
